FAERS Safety Report 7562143-3 (Version None)
Quarter: 2011Q2

REPORT INFORMATION
  Report Type: 
  Country: None (occurrence: None)
  Receive Date: 20110622
  Receipt Date: 20110616
  Transmission Date: 20111010
  Serious: Yes (Hospitalization)
  Sender: FDA-Public Use
  Company Number: FR-BRISTOL-MYERS SQUIBB COMPANY-15740806

PATIENT
  Age: 68 Year
  Sex: Male

DRUGS (3)
  1. CARBOPLATIN [Suspect]
     Indication: HEAD AND NECK CANCER
     Dosage: RECENT INF: 30SEP10
     Route: 042
     Dates: start: 20100927, end: 20100930
  2. FLUOROURACIL [Suspect]
     Indication: HEAD AND NECK CANCER
     Dosage: RECENT INF: 30SEP10
     Route: 042
     Dates: start: 20100927, end: 20100930
  3. ERBITUX [Suspect]
     Indication: HEAD AND NECK CANCER
     Dosage: FOLLOWED BY WEEKLY DOSES OF 410 MG UNTIL 25-OCT-2010
     Route: 042
     Dates: start: 20100920, end: 20100920

REACTIONS (4)
  - MUCOSAL INFLAMMATION [None]
  - DYSPHAGIA [None]
  - DERMATITIS [None]
  - ASTHENIA [None]
